FAERS Safety Report 7655659-2 (Version None)
Quarter: 2011Q3

REPORT INFORMATION
  Report Type: 
  Country: None (occurrence: None)
  Receive Date: 20110801
  Receipt Date: 20110718
  Transmission Date: 20111222
  Serious: Yes (Disabling)
  Sender: FDA-Public Use
  Company Number: DK-1182628

PATIENT
  Sex: Male
  Weight: 65 kg

DRUGS (1)
  1. CIPROFLAXACIN [Suspect]
     Indication: EAR INFECTION
     Dosage: (3 GTT BID AURICULAR (OTIC) )
     Route: 001
     Dates: start: 20100512, end: 20100518

REACTIONS (6)
  - DEAFNESS TRANSITORY [None]
  - EAR PAIN [None]
  - HEADACHE [None]
  - HYPOACUSIS [None]
  - CERUMEN IMPACTION [None]
  - MIDDLE EAR EFFUSION [None]
